FAERS Safety Report 18605262 (Version 1)
Quarter: 2020Q4

REPORT INFORMATION
  Report Type: Spontaneous
  Country: US (occurrence: US)
  Receive Date: 20201211
  Receipt Date: 20201211
  Transmission Date: 20210114
  Serious: Yes (Hospitalization)
  Sender: FDA-Public Use
  Company Number: US-VERTEX PHARMACEUTICALS-2020-024415

PATIENT
  Sex: Male
  Weight: 74 kg

DRUGS (7)
  1. PULMOZYME [Concomitant]
     Active Substance: DORNASE ALFA
  2. PANCREAZE [Concomitant]
     Active Substance: PANCRELIPASE AMYLASE\PANCRELIPASE LIPASE\PANCRELIPASE PROTEASE
  3. LANTUS [Concomitant]
     Active Substance: INSULIN GLARGINE
  4. HYPERSAL [Concomitant]
     Active Substance: SODIUM CHLORIDE
  5. NOVOLOG [Concomitant]
     Active Substance: INSULIN ASPART
  6. PROTONIX [OMEPRAZOLE] [Concomitant]
     Active Substance: OMEPRAZOLE
  7. TRIKAFTA [Suspect]
     Active Substance: ELEXACAFTOR\IVACAFTOR\TEZACAFTOR
     Indication: CYSTIC FIBROSIS
     Dosage: 2 ORANGE TABS(100MG ELEXACAFTOR/50MG TEZACAFTOR/75MG IVACAFTOR)AM;1 BLUE TAB(150MG IVACAFTOR)PM
     Route: 048

REACTIONS (1)
  - Diabetes mellitus [Unknown]

NARRATIVE: CASE EVENT DATE: 2020
